FAERS Safety Report 6921524-9 (Version None)
Quarter: 2010Q3

REPORT INFORMATION
  Report Type: 
  Country: None (occurrence: None)
  Receive Date: 20100812
  Receipt Date: 20100712
  Transmission Date: 20110219
  Serious: No
  Sender: FDA-Public Use
  Company Number: US-BAYER-201018201BCC

PATIENT
  Age: 59 Year
  Sex: Female
  Weight: 64 kg

DRUGS (4)
  1. ALEVE [Suspect]
     Indication: MYALGIA
     Route: 048
  2. ALEVE [Suspect]
     Indication: HEADACHE
     Dosage: TOTAL DAILY DOSE: 440 MG  UNIT DOSE: 220 MG
     Route: 048
     Dates: start: 20100706
  3. ASPIRIN [Suspect]
     Indication: MYALGIA
     Route: 048
  4. ESTRADIOL [Concomitant]
     Route: 065

REACTIONS (1)
  - ABDOMINAL DISCOMFORT [None]
